FAERS Safety Report 21139543 (Version 1)
Quarter: 2022Q3

REPORT INFORMATION
  Report Type: Spontaneous
  Country: US (occurrence: US)
  Receive Date: 20220727
  Receipt Date: 20220727
  Transmission Date: 20221027
  Serious: Yes (Other)
  Sender: FDA-Public Use
  Company Number: US-COOPERSURGICAL, INC.-US-2022CPS002443

PATIENT
  Age: 53 Year
  Sex: Female
  Weight: 60.408 kg

DRUGS (2)
  1. PARAGARD T 380A [Suspect]
     Active Substance: COPPER
     Indication: Product used for unknown indication
     Dosage: UNK
     Route: 015
     Dates: start: 20120523, end: 20171226
  2. MULTIVITAMINS + IRON [Concomitant]
     Indication: Product used for unknown indication
     Route: 065

REACTIONS (11)
  - Injury associated with device [Unknown]
  - Embedded device [Recovered/Resolved]
  - Device breakage [Recovered/Resolved]
  - Foreign body in reproductive tract [Recovered/Resolved]
  - Complication of device removal [Recovered/Resolved]
  - Pollakiuria [Unknown]
  - Vulvovaginal discomfort [Unknown]
  - Vaginal odour [Unknown]
  - Device expulsion [Recovered/Resolved]
  - Pain [Unknown]
  - Micturition urgency [Unknown]

NARRATIVE: CASE EVENT DATE: 20171213
